FAERS Safety Report 12062575 (Version 2)
Quarter: 2016Q1

REPORT INFORMATION
  Report Type: Spontaneous
  Country: JP (occurrence: JP)
  Receive Date: 20160210
  Receipt Date: 20160303
  Transmission Date: 20160526
  Serious: Yes (Other)
  Sender: FDA-Public Use
  Company Number: JP-MYLANLABS-2016M1004872

PATIENT

DRUGS (2)
  1. CISPLATIN. [Suspect]
     Active Substance: CISPLATIN
     Indication: FIBROMA
     Dosage: 100 MG/BODY/COURSE
     Route: 013
  2. CARBOPLATIN MYLAN [Suspect]
     Active Substance: CARBOPLATIN
     Indication: FIBROMA
     Dosage: 450 MG/BODY/COURSE
     Route: 013

REACTIONS (4)
  - Thrombocytopenia [Unknown]
  - Constipation [Unknown]
  - Neutropenia [Unknown]
  - Vomiting [Unknown]
